FAERS Safety Report 5565030-5 (Version None)
Quarter: 2007Q4

REPORT INFORMATION
  Report Type: 
  Country: None (occurrence: None)
  Receive Date: 20071218
  Receipt Date: 20071206
  Transmission Date: 20080405
  Serious: No
  Sender: FDA-Public Use
  Company Number: US-BAYER-200712702BCC

PATIENT
  Age: 80 Year
  Sex: Female
  Weight: 54 kg

DRUGS (2)
  1. ALEVE [Suspect]
     Indication: BACK PAIN
     Dosage: TOTAL DAILY DOSE: 220  MG  UNIT DOSE: 220 MG
     Route: 048
     Dates: start: 20070501
  2. CHOLESTEROL MEDICATION [Concomitant]

REACTIONS (1)
  - MICTURITION URGENCY [None]
